FAERS Safety Report 6727576-3 (Version None)
Quarter: 2010Q2

REPORT INFORMATION
  Report Type: 
  Country: None (occurrence: None)
  Receive Date: 20100517
  Receipt Date: 20100512
  Transmission Date: 20101027
  Serious: Yes (Life-Threatening, Other)
  Sender: FDA-Public Use
  Company Number: PHHY2010BR30866

PATIENT
  Age: 60 Year
  Sex: Female
  Weight: 63 kg

DRUGS (11)
  1. DIOVAN [Suspect]
     Indication: BLOOD PRESSURE
     Dosage: 80 MG, 1 TABLET A DAY
     Dates: start: 20070101
  2. DIOVAN [Suspect]
     Dosage: 160 MG, 1 TABLET A DAY
     Dates: start: 20080101
  3. CRESTOR [Concomitant]
     Indication: BLOOD CHOLESTEROL
     Dosage: 20 MG, 1 TABLET A DAY
     Route: 048
  4. CRESTOR [Concomitant]
     Dosage: 10 MG, 1 TABLET A DAY
     Route: 048
  5. OMEPRAZOLE [Concomitant]
     Indication: ABDOMINAL PAIN UPPER
     Dosage: 20 MG, 1 TABLET A DAY
     Route: 048
     Dates: start: 20080101, end: 20100401
  6. ESTRADIOL VALERATE [Concomitant]
     Indication: MENOPAUSE
     Dosage: 1 TABLET A DAY
     Route: 048
     Dates: start: 20080101
  7. SYNTHROID [Concomitant]
     Indication: HYPOTHYROIDISM
     Dosage: 88 MCG, 1 TABLET A DAY
     Route: 048
  8. METFORMIN HYDROCHLORIDE [Concomitant]
     Indication: GLUCOSE TOLERANCE IMPAIRED
     Dosage: 850 MG, 1 TABLET TWICE A DAY
     Route: 048
  9. METFORMIN HYDROCHLORIDE [Concomitant]
     Dosage: 850 MG, 1 TABLET A DAY
     Route: 048
  10. BUFERIN [Concomitant]
     Indication: ANTICOAGULANT THERAPY
     Dosage: 1 TABLET AT LUNCH
     Route: 048
     Dates: start: 20040101
  11. DIET [Concomitant]

REACTIONS (7)
  - ANXIETY [None]
  - BLOOD CHOLESTEROL INCREASED [None]
  - BLOOD PRESSURE INCREASED [None]
  - CHEST PAIN [None]
  - FEELING ABNORMAL [None]
  - MYALGIA [None]
  - WEIGHT DECREASED [None]
